FAERS Safety Report 23304302 (Version 1)
Quarter: 2023Q4

REPORT INFORMATION
  Report Type: Spontaneous
  Country: IT (occurrence: IT)
  Receive Date: 20231218
  Receipt Date: 20231218
  Transmission Date: 20240110
  Serious: Yes (Hospitalization, Other)
  Sender: FDA-Public Use
  Company Number: IT-AMGEN-ITASP2023222451

PATIENT

DRUGS (2)
  1. ADALIMUMAB [Suspect]
     Active Substance: ADALIMUMAB\ISOPROPYL ALCOHOL
     Indication: Colitis ulcerative
     Dosage: UNK
     Route: 065
  2. ADALIMUMAB [Suspect]
     Active Substance: ADALIMUMAB\ISOPROPYL ALCOHOL
     Indication: Crohn^s disease

REACTIONS (11)
  - Pouchitis [Unknown]
  - Haematochezia [Unknown]
  - Frequent bowel movements [Unknown]
  - Asthenia [Unknown]
  - Diarrhoea [Unknown]
  - Malaise [Unknown]
  - Injection site pain [Unknown]
  - Headache [Unknown]
  - Abdominal pain [Unknown]
  - Vomiting [Unknown]
  - Pyrexia [Unknown]
